FAERS Safety Report 9633832 (Version 4)
Quarter: 2013Q4

REPORT INFORMATION
  Report Type: Spontaneous
  Country: US (occurrence: US)
  Receive Date: 20131021
  Receipt Date: 20131227
  Transmission Date: 20140711
  Serious: Yes (Other)
  Sender: FDA-Public Use
  Company Number: US-PFIZER INC-2013274610

PATIENT
  Sex: Female

DRUGS (6)
  1. ZOLOFT [Suspect]
     Indication: BIPOLAR DISORDER
     Dosage: UNK, 1X/DAY (PER DAY)
     Route: 048
     Dates: start: 1995
  2. ZYBAN [Interacting]
     Indication: BIPOLAR DISORDER
     Dosage: UNK, 2X/DAY
     Route: 048
     Dates: start: 1995, end: 1995
  3. ZYBAN [Interacting]
     Indication: SMOKING CESSATION THERAPY
  4. CYMBALTA [Concomitant]
     Indication: BIPOLAR DISORDER
     Dosage: UNK
  5. XANAX [Concomitant]
     Dosage: UNK
  6. DICYCLOMINE HYDROCHLORIDE [Concomitant]
     Dosage: UNK

REACTIONS (6)
  - Drug interaction [Recovered/Resolved]
  - Grand mal convulsion [Recovered/Resolved]
  - Fall [Recovered/Resolved]
  - Foaming at mouth [Recovered/Resolved]
  - Postictal state [Recovered/Resolved]
  - Off label use [Unknown]
